FAERS Safety Report 25338341 (Version 1)
Quarter: 2025Q2

REPORT INFORMATION
  Report Type: Spontaneous
  Country: US (occurrence: US)
  Receive Date: 20250520
  Receipt Date: 20250520
  Transmission Date: 20250716
  Serious: No
  Sender: SANOFI AVENTIS
  Company Number: US-SA-2025SA141889

PATIENT
  Age: 58 Year
  Sex: Female
  Weight: 65.77 kg

DRUGS (14)
  1. DUPIXENT [Suspect]
     Active Substance: DUPILUMAB
     Indication: Dermatitis atopic
     Dosage: 300 MG, QOW
     Route: 058
  2. CLOBETASOL PROPIONATE [Concomitant]
     Active Substance: CLOBETASOL PROPIONATE
  3. EUCRISA [Concomitant]
     Active Substance: CRISABOROLE
  4. VALIUM [Concomitant]
     Active Substance: DIAZEPAM
  5. ZANAFLEX [Concomitant]
     Active Substance: TIZANIDINE HYDROCHLORIDE
  6. CLONIDINE HYDROCHLORIDE [Concomitant]
     Active Substance: CLONIDINE HYDROCHLORIDE
  7. SINEMET [Concomitant]
     Active Substance: CARBIDOPA\LEVODOPA
  8. METFORMIN [Concomitant]
     Active Substance: METFORMIN HYDROCHLORIDE
  9. PRIMIDONE [Concomitant]
     Active Substance: PRIMIDONE
  10. COZAAR [Concomitant]
     Active Substance: LOSARTAN POTASSIUM
  11. ABILIFY [Concomitant]
     Active Substance: ARIPIPRAZOLE
  12. HYDROXYZINE HYDROCHLORIDE [Concomitant]
     Active Substance: HYDROXYZINE HYDROCHLORIDE
  13. CELEBREX [Concomitant]
     Active Substance: CELECOXIB
  14. GEMTESA [Concomitant]
     Active Substance: VIBEGRON

REACTIONS (2)
  - Pruritus [Not Recovered/Not Resolved]
  - Therapeutic response decreased [Not Recovered/Not Resolved]
